FAERS Safety Report 20471770 (Version 2)
Quarter: 2022Q1

REPORT INFORMATION
  Report Type: Report from Study
  Country: US (occurrence: None)
  Receive Date: 20220214
  Receipt Date: 20220222
  Transmission Date: 20220423
  Serious: Yes (Hospitalization)
  Sender: FDA-Public Use
  Company Number: US-Eisai Medical Research-EC-2022-107831

PATIENT
  Age: 68 Year
  Sex: Female
  Weight: 65.77 kg

DRUGS (16)
  1. LENVIMA [Suspect]
     Active Substance: LENVATINIB
     Indication: Hepatocellular carcinoma
     Route: 048
     Dates: start: 202201, end: 20220130
  2. ALBUTEROL SULFATE [Concomitant]
     Active Substance: ALBUTEROL SULFATE
  3. ASPIRIN [Concomitant]
     Active Substance: ASPIRIN
  4. WELLBUTRIN XL [Concomitant]
     Active Substance: BUPROPION HYDROCHLORIDE
  5. COREG [Concomitant]
     Active Substance: CARVEDILOL
  6. GABAPENTIN [Concomitant]
     Active Substance: GABAPENTIN
  7. HUMALOG KWIKPEN [Concomitant]
     Active Substance: INSULIN LISPRO
  8. MAGNESIUM OXIDE [Concomitant]
     Active Substance: MAGNESIUM OXIDE
  9. ROBAXIN [Concomitant]
     Active Substance: METHOCARBAMOL
  10. PANTOPRAZOLE SODIUM [Concomitant]
     Active Substance: PANTOPRAZOLE SODIUM
  11. SULFAMETHOXAZOLE\TRIMETHOPRIM [Concomitant]
     Active Substance: SULFAMETHOXAZOLE\TRIMETHOPRIM
     Dosage: 400-800 MG
  12. PROGRAF [Concomitant]
     Active Substance: TACROLIMUS
  13. TRAZODONE [Concomitant]
     Active Substance: TRAZODONE HYDROCHLORIDE
  14. URSODIOL [Concomitant]
     Active Substance: URSODIOL
  15. GLECAPREVIR-PIBRENTAS VIR [Concomitant]
     Dosage: 100-40 MG
  16. LATANOPROST [Concomitant]
     Active Substance: LATANOPROST
     Dosage: 0.005%

REACTIONS (3)
  - Pancreatitis [Unknown]
  - Urinary tract infection [Unknown]
  - Gastrointestinal infection [Recovering/Resolving]

NARRATIVE: CASE EVENT DATE: 20220130
